FAERS Safety Report 5067682-5 (Version None)
Quarter: 2006Q3

REPORT INFORMATION
  Report Type: 
  Country: None (occurrence: None)
  Receive Date: 20060802
  Receipt Date: 20060724
  Transmission Date: 20061208
  Serious: Yes (Life-Threatening, Hospitalization)
  Sender: FDA-Public Use
  Company Number: JP-JNJFOC-20040701932

PATIENT
  Sex: Female
  Weight: 64 kg

DRUGS (20)
  1. REMICADE [Suspect]
     Route: 042
  2. REMICADE [Suspect]
     Route: 042
  3. REMICADE [Suspect]
     Route: 042
  4. REMICADE [Suspect]
     Route: 042
  5. REMICADE [Suspect]
     Route: 042
  6. REMICADE [Suspect]
     Indication: RHEUMATOID ARTHRITIS
     Route: 042
  7. RHEUMATREX [Suspect]
     Indication: RHEUMATOID ARTHRITIS
  8. BUCILLAMINE [Concomitant]
  9. CYCLOSPORINE [Concomitant]
  10. NON-STEROIDAL ANTI-INFLAMMATORY [Concomitant]
  11. PREDNISOLONE [Concomitant]
     Dosage: DISCONTINUED AROUND 20-OCT-03
     Route: 048
  12. PREDNISOLONE [Concomitant]
     Route: 048
  13. PREDNISOLONE [Concomitant]
     Route: 048
  14. PREDNISOLONE [Concomitant]
     Route: 048
  15. PREDNISOLONE [Concomitant]
     Route: 048
  16. BREDININ [Concomitant]
     Indication: RHEUMATOID ARTHRITIS
     Route: 048
  17. PURSENNID [Concomitant]
     Route: 048
  18. OMEPRAL [Concomitant]
     Route: 065
  19. VOLTAREN [Concomitant]
     Indication: RHEUMATOID ARTHRITIS
     Route: 054
  20. LOXONIN [Concomitant]
     Indication: PYREXIA

REACTIONS (1)
  - HODGKIN'S DISEASE [None]
